FAERS Safety Report 12673907 (Version 1)
Quarter: 2016Q3

REPORT INFORMATION
  Report Type: Spontaneous
  Country: US (occurrence: US)
  Receive Date: 20160822
  Receipt Date: 20160822
  Transmission Date: 20161109
  Serious: Yes (Other)
  Sender: FDA-Public Use
  Company Number: US-SA-2016SA116017

PATIENT
  Age: 78 Year
  Sex: Male
  Weight: 86.1 kg

DRUGS (12)
  1. WARFARIN [Concomitant]
     Active Substance: WARFARIN
     Indication: CEREBROVASCULAR ACCIDENT
     Dosage: DOSE: 4.5 (UNITS UNKNOWN)
  2. TOUJEO [Suspect]
     Active Substance: INSULIN GLARGINE
     Indication: TYPE 2 DIABETES MELLITUS
     Dosage: DOSE:25 UNIT(S)
     Route: 058
     Dates: start: 20160503, end: 20160603
  3. SOLOSTAR [Concomitant]
     Active Substance: DEVICE
     Indication: DIABETES MELLITUS
     Dates: start: 20160528, end: 20160609
  4. LANTUS [Concomitant]
     Active Substance: INSULIN GLARGINE
     Indication: DIABETES MELLITUS
     Dosage: DOSE: 25 (UNITS UNKNOWN)
  5. ATORVASTATIN [Concomitant]
     Active Substance: ATORVASTATIN
     Dosage: DOSE: 10 (UNITS UNKNOWN)
  6. ASPIRIN. [Concomitant]
     Active Substance: ASPIRIN
     Dosage: AT LOW DOSE
  7. HUMALOG [Concomitant]
     Active Substance: INSULIN LISPRO
     Indication: DIABETES MELLITUS
     Dosage: DOSE: SLIDING SCALE
  8. GABAPENTIN. [Concomitant]
     Active Substance: GABAPENTIN
     Dosage: DOSE: 400 (UNITS UNKNOWN)
  9. CARVEDILOL. [Concomitant]
     Active Substance: CARVEDILOL
     Dosage: DOSE: 6.5 (UNITS UNKNOWN)
  10. ISOSORBIDE DINITRATE. [Concomitant]
     Active Substance: ISOSORBIDE DINITRATE
     Indication: ANGINA PECTORIS
     Dosage: FREQUENCY: 20X2 (UNITS UNKNOWN)
  11. METFORMIN [Concomitant]
     Active Substance: METFORMIN HYDROCHLORIDE
     Dosage: DOSE: 500 (UNITS UNKNOWN)
  12. LISINOPRIL. [Concomitant]
     Active Substance: LISINOPRIL
     Dosage: DOSE: 5 (UNITS UNKNOWN)

REACTIONS (4)
  - Actinic keratosis [Unknown]
  - Blister [Unknown]
  - Rash [Recovering/Resolving]
  - Dermatitis [Unknown]

NARRATIVE: CASE EVENT DATE: 20160601
